FAERS Safety Report 6530804-0 (Version None)
Quarter: 2010Q1

REPORT INFORMATION
  Report Type: 
  Country: None (occurrence: None)
  Receive Date: 20100108
  Receipt Date: 20090511
  Transmission Date: 20100710
  Serious: No
  Sender: FDA-Public Use
  Company Number: A0770915A

PATIENT
  Age: 59 Year
  Sex: Female

DRUGS (1)
  1. LOVAZA [Suspect]
     Indication: DRUG USE FOR UNKNOWN INDICATION
     Dosage: 4G PER DAY
     Route: 048
     Dates: end: 20090201

REACTIONS (4)
  - DIARRHOEA [None]
  - PAROSMIA [None]
  - PRODUCT QUALITY ISSUE [None]
  - WEIGHT DECREASED [None]
